FAERS Safety Report 4313432-7 (Version None)
Quarter: 2004Q1

REPORT INFORMATION
  Report Type: 
  Country: None (occurrence: None)
  Receive Date: 20040304
  Receipt Date: 20040212
  Transmission Date: 20041129
  Serious: Yes (Other)
  Sender: FDA-Public Use
  Company Number: US_0402100810

PATIENT
  Age: 64 Year
  Sex: Male

DRUGS (4)
  1. HUMALOG [Suspect]
     Indication: DIABETES MELLITUS
     Dates: start: 20030101
  2. CALCIUM [Concomitant]
  3. FOSAMAX [Concomitant]
  4. LANTUS [Concomitant]

REACTIONS (1)
  - SPINAL FRACTURE [None]
